FAERS Safety Report 5320186-4 (Version None)
Quarter: 2007Q2

REPORT INFORMATION
  Report Type: 
  Country: None (occurrence: None)
  Receive Date: 20070503
  Receipt Date: 20070503
  Transmission Date: 20071010
  Serious: Yes (Other)
  Sender: FDA-Public Use
  Company Number: None

PATIENT
  Age: 83 Year
  Sex: Male
  Weight: 75 kg

DRUGS (1)
  1. IRON DEXTRAN [Suspect]
     Indication: ANAEMIA
     Dosage: 10 MG ONE TIME DOSE IV DRIP
     Route: 041
     Dates: start: 20070502, end: 20070502

REACTIONS (2)
  - DYSPNOEA [None]
  - INFUSION RELATED REACTION [None]
